FAERS Safety Report 12335360 (Version 2)
Quarter: 2016Q2

REPORT INFORMATION
  Report Type: Spontaneous
  Country: FR (occurrence: FR)
  Receive Date: 20160504
  Receipt Date: 20160630
  Transmission Date: 20160815
  Serious: Yes (Other)
  Sender: FDA-Public Use
  Company Number: FR-009507513-1605FRA001311

PATIENT
  Age: 66 Year
  Sex: Female

DRUGS (3)
  1. CEFIXIME. [Suspect]
     Active Substance: CEFIXIME
     Indication: LUNG DISORDER
     Dosage: UNK
     Route: 048
     Dates: start: 20160322, end: 20160408
  2. KEYTRUDA [Suspect]
     Active Substance: PEMBROLIZUMAB
     Indication: METASTATIC MALIGNANT MELANOMA
     Dosage: UNK
     Route: 042
     Dates: start: 20151012
  3. PEMBROLIZUMAB. [Concomitant]
     Active Substance: PEMBROLIZUMAB

REACTIONS (2)
  - Blood creatinine increased [Recovering/Resolving]
  - Blood urea increased [Recovered/Resolved]

NARRATIVE: CASE EVENT DATE: 20160401
